FAERS Safety Report 8984404 (Version 2)
Quarter: 2013Q1

REPORT INFORMATION
  Report Type: Spontaneous
  Country: JP (occurrence: JP)
  Receive Date: 20121226
  Receipt Date: 20130123
  Transmission Date: 20140127
  Serious: Yes (Life-Threatening, Other)
  Sender: FDA-Public Use
  Company Number: JP-JNJFOC-20121112425

PATIENT
  Age: 72 Year
  Sex: Male
  Weight: 64 kg

DRUGS (15)
  1. REMICADE [Suspect]
     Indication: COLITIS ULCERATIVE
     Dosage: SECOND DOSE
     Route: 042
     Dates: start: 20121112
  2. REMICADE [Suspect]
     Indication: COLITIS ULCERATIVE
     Dosage: FIRST DOSE
     Route: 042
     Dates: start: 20121026
  3. FUNGUARD [Suspect]
     Indication: SYSTEMIC MYCOSIS
     Route: 065
     Dates: start: 20121013, end: 20121112
  4. MEROPENEM TRIHYDRATE [Suspect]
     Indication: SEPSIS
     Route: 065
     Dates: start: 20121018, end: 20121115
  5. PENTASA [Concomitant]
     Indication: COLITIS ULCERATIVE
     Route: 048
     Dates: start: 20121027, end: 20121109
  6. PARIET [Concomitant]
     Indication: GASTROOESOPHAGEAL REFLUX DISEASE
     Route: 048
     Dates: start: 20121001, end: 20121118
  7. ASACOL [Concomitant]
     Indication: COLITIS ULCERATIVE
     Route: 048
     Dates: start: 20120924
  8. PREDNISOLONE [Concomitant]
     Route: 065
     Dates: start: 20120924
  9. TALION [Concomitant]
     Indication: PREMEDICATION
     Route: 048
     Dates: start: 20121026, end: 20121112
  10. LASIX [Concomitant]
     Indication: GENERALISED OEDEMA
     Route: 042
     Dates: start: 20121109
  11. FENTANYL [Concomitant]
     Indication: ABDOMINAL PAIN
     Route: 042
     Dates: start: 20121013
  12. POTASSIUM CANRENOATE [Concomitant]
     Indication: GENERALISED OEDEMA
     Route: 042
     Dates: start: 20121109
  13. ROHYPNOL [Concomitant]
     Indication: INSOMNIA
     Route: 065
     Dates: start: 20120921, end: 20121113
  14. HUMULIN R [Concomitant]
     Indication: DIABETES MELLITUS
     Dosage: 20 UT
     Route: 065
     Dates: start: 20120918
  15. ELNEOPA NO 1 [Concomitant]
     Indication: MEDICAL DIET
     Route: 065
     Dates: start: 20120929, end: 20121227

REACTIONS (2)
  - Respiratory failure [Recovering/Resolving]
  - Interstitial lung disease [Recovering/Resolving]
